FAERS Safety Report 5684912-7 (Version None)
Quarter: 2008Q1

REPORT INFORMATION
  Report Type: 
  Country: None (occurrence: None)
  Receive Date: 20080328
  Receipt Date: 20071211
  Transmission Date: 20080703
  Serious: Yes (Other)
  Sender: FDA-Public Use
  Company Number: US-BRISTOL-MYERS SQUIBB COMPANY-14010987

PATIENT
  Sex: Male

DRUGS (6)
  1. ERBITUX [Suspect]
     Indication: COLORECTAL CANCER
     Route: 042
  2. BENADRYL [Concomitant]
  3. SOLU-MEDROL [Concomitant]
  4. ZANTAC [Concomitant]
  5. ATIVAN [Concomitant]
  6. TYLENOL (CAPLET) [Concomitant]

REACTIONS (1)
  - INFUSION RELATED REACTION [None]
